FAERS Safety Report 6397789-1 (Version None)
Quarter: 2009Q4

REPORT INFORMATION
  Report Type: 
  Country: None (occurrence: None)
  Receive Date: 20091012
  Receipt Date: 20091007
  Transmission Date: 20100525
  Serious: Yes (Hospitalization, Other)
  Sender: FDA-Public Use
  Company Number: DE-ROXANE LABORATORIES, INC.-2009-RO-01031RO

PATIENT
  Age: 60 Year
  Sex: Male

DRUGS (6)
  1. METHADONE HYDROCHLORIDE [Suspect]
  2. CAPTAGON [Suspect]
  3. DICLOFENAC [Suspect]
  4. NALOXONE [Concomitant]
     Indication: DEPRESSED LEVEL OF CONSCIOUSNESS
  5. NALOXONE [Concomitant]
     Route: 042
  6. NALTREXONE HYDROCHLORIDE [Concomitant]
     Indication: DEPRESSED LEVEL OF CONSCIOUSNESS
     Route: 048

REACTIONS (5)
  - DEPRESSED LEVEL OF CONSCIOUSNESS [None]
  - DRUG SCREEN POSITIVE [None]
  - MIOSIS [None]
  - RESPIRATORY DEPRESSION [None]
  - URINARY RETENTION [None]
